FAERS Safety Report 10156525 (Version 1)
Quarter: 2014Q2

REPORT INFORMATION
  Report Type: Spontaneous
  Country: US (occurrence: None)
  Receive Date: 20140506
  Receipt Date: 20140506
  Transmission Date: 20141212
  Serious: Yes (Life-Threatening, Hospitalization)
  Sender: FDA-Public Use
  Company Number: None

PATIENT
  Age: 77 Year
  Sex: Female
  Weight: 63.5 kg

DRUGS (1)
  1. PRADAXA [Suspect]
     Indication: ATRIAL FIBRILLATION
     Dates: end: 20130424

REACTIONS (15)
  - Diarrhoea haemorrhagic [None]
  - Malaise [None]
  - Tachycardia [None]
  - Cardiac failure [None]
  - Fatigue [None]
  - Anaemia [None]
  - Haematochezia [None]
  - Rectal haemorrhage [None]
  - Constipation [None]
  - Fear [None]
  - Haemorrhage [None]
  - Ulcer haemorrhage [None]
  - Quality of life decreased [None]
  - Anhedonia [None]
  - Pain [None]
